FAERS Safety Report 9664028 (Version 1)
Quarter: 2013Q4

REPORT INFORMATION
  Report Type: Spontaneous
  Country: DK (occurrence: DK)
  Receive Date: 20131101
  Receipt Date: 20131101
  Transmission Date: 20140711
  Serious: Yes (Disabling)
  Sender: FDA-Public Use
  Company Number: DK-PFIZER INC-2013311074

PATIENT
  Age: 81 Year
  Sex: Female

DRUGS (11)
  1. LYRICA [Suspect]
     Indication: NEURALGIA
     Dosage: 75 MG, 1X/DAY
     Route: 048
     Dates: start: 20130808, end: 20130909
  2. HJERTEMAGNYL [Concomitant]
     Indication: ANTICOAGULANT THERAPY
  3. HJERTEMAGNYL [Concomitant]
     Indication: THROMBOSIS PROPHYLAXIS
  4. SIMVASTATIN [Concomitant]
     Indication: HYPERCHOLESTEROLAEMIA
  5. KALEORID [Concomitant]
     Indication: MINERAL SUPPLEMENTATION
  6. SYMBICORT FORTE TURBOHALER [Concomitant]
     Indication: CHRONIC OBSTRUCTIVE PULMONARY DISEASE
  7. IMDUR [Concomitant]
     Indication: ANGINA PECTORIS
  8. COZAAR [Concomitant]
     Indication: HYPERTENSION
  9. TRADOLAN [Concomitant]
     Indication: PAIN
  10. CENTYL MED KALIUMKLORID [Concomitant]
     Indication: HYPERTENSION
  11. FURIX [Concomitant]
     Indication: HYPERTENSION

REACTIONS (7)
  - Dizziness [Recovering/Resolving]
  - Visual impairment [Recovering/Resolving]
  - Rash [Recovered/Resolved]
  - Oedema mouth [Recovered/Resolved]
  - Nasal congestion [Recovered/Resolved]
  - Rash [Recovered/Resolved]
  - Fall [Recovered/Resolved]
